FAERS Safety Report 7586864-1 (Version None)
Quarter: 2011Q3

REPORT INFORMATION
  Report Type: 
  Country: None (occurrence: None)
  Receive Date: 20110701
  Receipt Date: 20110625
  Transmission Date: 20111222
  Serious: Yes (Hospitalization)
  Sender: FDA-Public Use
  Company Number: US-GENENTECH-320806

PATIENT
  Sex: Male

DRUGS (2)
  1. RITUXAN [Suspect]
     Indication: NON-HODGKIN'S LYMPHOMA
     Dosage: UNK
     Dates: start: 20020101
  2. TREANDA [Suspect]
     Indication: NON-HODGKIN'S LYMPHOMA
     Dosage: UNK

REACTIONS (4)
  - MOTOR DYSFUNCTION [None]
  - BLINDNESS UNILATERAL [None]
  - ABASIA [None]
  - NON-HODGKIN'S LYMPHOMA RECURRENT [None]
